FAERS Safety Report 14512377 (Version 1)
Quarter: 2018Q1

REPORT INFORMATION
  Report Type: Spontaneous
  Country: US (occurrence: US)
  Receive Date: 20180209
  Receipt Date: 20180209
  Transmission Date: 20180509
  Serious: No
  Sender: FDA-Public Use
  Company Number: US-ALLERGAN-1718566US

PATIENT
  Sex: Female

DRUGS (2)
  1. XIIDRA [Concomitant]
     Active Substance: LIFITEGRAST
     Route: 047
  2. RESTASIS [Suspect]
     Active Substance: CYCLOSPORINE
     Indication: PRODUCT USED FOR UNKNOWN INDICATION
     Dosage: UNK
     Route: 047

REACTIONS (4)
  - Feeling abnormal [Recovered/Resolved]
  - Drug dose omission [Unknown]
  - Dacryostenosis acquired [Not Recovered/Not Resolved]
  - Eye irritation [Recovered/Resolved]
